FAERS Safety Report 9714014 (Version 2)
Quarter: 2015Q3

REPORT INFORMATION
  Report Type: Spontaneous
  Country: US (occurrence: US)
  Receive Date: 20131126
  Receipt Date: 20150803
  Transmission Date: 20151125
  Serious: No
  Sender: FDA-Public Use
  Company Number: US-GILEAD-2008-0018552

PATIENT
  Age: 67 Year
  Sex: Male
  Weight: 113.4 kg

DRUGS (19)
  1. LISINOPRIL. [Concomitant]
     Active Substance: LISINOPRIL
  2. VYTORIN [Concomitant]
     Active Substance: EZETIMIBE\SIMVASTATIN
  3. NIASPAN [Concomitant]
     Active Substance: NIACIN
  4. PREVACID [Concomitant]
     Active Substance: LANSOPRAZOLE
  5. HUMULIN L INSULIN [Concomitant]
  6. CYCLOSPORINE. [Concomitant]
     Active Substance: CYCLOSPORINE
  7. ALLOPURINOL. [Concomitant]
     Active Substance: ALLOPURINOL
  8. TOPROL XL [Concomitant]
     Active Substance: METOPROLOL SUCCINATE
  9. K-PHOS [Concomitant]
     Active Substance: POTASSIUM PHOSPHATE, MONOBASIC
  10. FLOMAX [Concomitant]
     Active Substance: TAMSULOSIN HYDROCHLORIDE
  11. LANTUS [Concomitant]
     Active Substance: INSULIN GLARGINE
  12. RAPAMUNE [Concomitant]
     Active Substance: SIROLIMUS
  13. FERROUS SULFATE [Concomitant]
     Active Substance: FERROUS SULFATE\FERROUS SULFATE, DRIED
  14. LASIX [Concomitant]
     Active Substance: FUROSEMIDE
  15. LETAIRIS [Suspect]
     Active Substance: AMBRISENTAN
     Indication: PULMONARY ARTERIAL HYPERTENSION
     Route: 048
     Dates: start: 20080929
  16. CARTIA XT [Concomitant]
     Active Substance: DILTIAZEM HYDROCHLORIDE
  17. ASPIRIN EC [Concomitant]
     Active Substance: ASPIRIN
  18. WARFARIN [Concomitant]
     Active Substance: WARFARIN
  19. TESTOSTERONE. [Concomitant]
     Active Substance: TESTOSTERONE

REACTIONS (1)
  - Drug intolerance [None]
